FAERS Safety Report 9372224 (Version 1)
Quarter: 2013Q2

REPORT INFORMATION
  Report Type: Spontaneous
  Country: US (occurrence: None)
  Receive Date: 20130625
  Receipt Date: 20130625
  Transmission Date: 20140414
  Serious: Yes (Life-Threatening, Other)
  Sender: FDA-Public Use
  Company Number: 2013P1008629

PATIENT
  Age: 20 Year
  Sex: Female

DRUGS (2)
  1. ONDANSETRON [Suspect]
     Dates: start: 20110910, end: 20110911
  2. AZITHROMYCIN [Suspect]
     Indication: PNEUMONIA
     Route: 042
     Dates: start: 20110912, end: 20110913

REACTIONS (9)
  - Bradycardia [None]
  - Hypotension [None]
  - Ventricular fibrillation [None]
  - Cardiac arrest [None]
  - Mydriasis [None]
  - Brain injury [None]
  - Hypoxic-ischaemic encephalopathy [None]
  - Ischaemic hepatitis [None]
  - Electrocardiogram QT prolonged [None]
